FAERS Safety Report 9844960 (Version 1)
Quarter: 2014Q1

REPORT INFORMATION
  Report Type: Spontaneous
  Country: US (occurrence: None)
  Receive Date: 20140123
  Receipt Date: 20140123
  Transmission Date: 20141002
  Serious: Yes (Other)
  Sender: FDA-Public Use
  Company Number: None

PATIENT
  Age: 65 Year
  Sex: Female
  Weight: 61.24 kg

DRUGS (2)
  1. HALFLYTELY +BISACODYL PREP KIT [Suspect]
     Indication: ENDOSCOPY
     Dosage: 2 PILLS+1/2LIQUID 5PM,REST 2AM ?ONCE?TAKEN BY MOUTH
     Route: 048
     Dates: start: 20130114, end: 20130115
  2. HALFLYTELY +BISACODYL PREP KIT [Suspect]
     Indication: COLONOSCOPY
     Dosage: 2 PILLS+1/2LIQUID 5PM,REST 2AM ?ONCE?TAKEN BY MOUTH
     Route: 048
     Dates: start: 20130114, end: 20130115

REACTIONS (6)
  - Feeling cold [None]
  - Tremor [None]
  - Blood pressure increased [None]
  - Joint injury [None]
  - Condition aggravated [None]
  - Dehydration [None]
